FAERS Safety Report 6333478-7 (Version None)
Quarter: 2009Q3

REPORT INFORMATION
  Report Type: 
  Country: None (occurrence: None)
  Receive Date: 20090828
  Receipt Date: 20090821
  Transmission Date: 20100115
  Serious: Yes (Other)
  Sender: FDA-Public Use
  Company Number: FR-BAXTER-2009BH013235

PATIENT
  Age: 65 Year
  Sex: Female

DRUGS (3)
  1. ENDOXAN BAXTER [Suspect]
     Indication: BREAST CANCER
     Route: 048
     Dates: start: 20090620
  2. ENDOXAN BAXTER [Suspect]
     Indication: METASTASES TO LIVER
     Route: 048
     Dates: start: 20090620
  3. PREDNISOLONE [Concomitant]
     Indication: DRUG USE FOR UNKNOWN INDICATION
     Route: 048
     Dates: start: 20090101

REACTIONS (4)
  - ASCITES [None]
  - CONDITION AGGRAVATED [None]
  - DERMATITIS BULLOUS [None]
  - HAIR GROWTH ABNORMAL [None]
